FAERS Safety Report 25061681 (Version 9)
Quarter: 2025Q3

REPORT INFORMATION
  Report Type: Spontaneous
  Country: EU (occurrence: EU)
  Receive Date: 20250311
  Receipt Date: 20250812
  Transmission Date: 20251020
  Serious: Yes (Hospitalization, Other)
  Sender: Haleon PLC
  Company Number: EU-002147023-NVSC2025DE036796

PATIENT
  Age: 82 Year
  Sex: Female
  Weight: 56 kg

DRUGS (745)
  1. DICLOFENAC [Suspect]
     Active Substance: DICLOFENAC
     Indication: Product used for unknown indication
     Dosage: 2 DOSAGE FORM, QD?ROUTE: UNKNOWN
  2. DICLOFENAC [Suspect]
     Active Substance: DICLOFENAC
  3. DICLOFENAC [Suspect]
     Active Substance: DICLOFENAC
  4. LOSARTAN POTASSIUM [Suspect]
     Active Substance: LOSARTAN POTASSIUM
     Indication: Product used for unknown indication
  5. LOSARTAN POTASSIUM [Suspect]
     Active Substance: LOSARTAN POTASSIUM
     Dosage: UNK UNK, QD (UNITS: UNKNOWN), DAILY
  6. LOSARTAN POTASSIUM [Suspect]
     Active Substance: LOSARTAN POTASSIUM
     Dosage: 1 DOSAGE FORM, QD
  7. LOSARTAN POTASSIUM [Suspect]
     Active Substance: LOSARTAN POTASSIUM
  8. CLOPIDOGREL [Suspect]
     Active Substance: CLOPIDOGREL BISULFATE
     Indication: Product used for unknown indication
  9. CLOPIDOGREL [Suspect]
     Active Substance: CLOPIDOGREL BISULFATE
  10. CLOPIDOGREL [Suspect]
     Active Substance: CLOPIDOGREL BISULFATE
  11. CLOPIDOGREL [Suspect]
     Active Substance: CLOPIDOGREL BISULFATE
  12. CLOPIDOGREL [Suspect]
     Active Substance: CLOPIDOGREL BISULFATE
  13. CLOPIDOGREL [Suspect]
     Active Substance: CLOPIDOGREL BISULFATE
  14. CLOPIDOGREL [Suspect]
     Active Substance: CLOPIDOGREL BISULFATE
  15. CLOPIDOGREL [Suspect]
     Active Substance: CLOPIDOGREL BISULFATE
     Route: 050
     Dates: end: 20170124
  16. CLOPIDOGREL [Suspect]
     Active Substance: CLOPIDOGREL BISULFATE
  17. CLOPIDOGREL [Suspect]
     Active Substance: CLOPIDOGREL BISULFATE
  18. CLOPIDOGREL [Suspect]
     Active Substance: CLOPIDOGREL BISULFATE
  19. CLOPIDOGREL [Suspect]
     Active Substance: CLOPIDOGREL BISULFATE
     Dates: start: 20170124, end: 20170124
  20. CLOPIDOGREL [Suspect]
     Active Substance: CLOPIDOGREL BISULFATE
  21. CLOPIDOGREL [Suspect]
     Active Substance: CLOPIDOGREL BISULFATE
  22. CLOPIDOGREL [Suspect]
     Active Substance: CLOPIDOGREL BISULFATE
  23. CLOPIDOGREL [Suspect]
     Active Substance: CLOPIDOGREL BISULFATE
     Route: 050
  24. CLOPIDOGREL [Suspect]
     Active Substance: CLOPIDOGREL BISULFATE
     Route: 048
     Dates: end: 20170124
  25. CLOPIDOGREL [Suspect]
     Active Substance: CLOPIDOGREL BISULFATE
  26. CLOPIDOGREL [Suspect]
     Active Substance: CLOPIDOGREL BISULFATE
     Route: 048
  27. CLOPIDOGREL [Suspect]
     Active Substance: CLOPIDOGREL BISULFATE
     Route: 050
     Dates: end: 20170124
  28. CLOPIDOGREL [Suspect]
     Active Substance: CLOPIDOGREL BISULFATE
     Route: 048
     Dates: end: 20170124
  29. CLOPIDOGREL [Suspect]
     Active Substance: CLOPIDOGREL BISULFATE
  30. CLOPIDOGREL [Suspect]
     Active Substance: CLOPIDOGREL BISULFATE
     Route: 048
  31. CLOPIDOGREL [Suspect]
     Active Substance: CLOPIDOGREL BISULFATE
     Route: 048
     Dates: end: 20170124
  32. CLOPIDOGREL [Suspect]
     Active Substance: CLOPIDOGREL BISULFATE
     Route: 048
     Dates: end: 20170124
  33. CLOPIDOGREL [Suspect]
     Active Substance: CLOPIDOGREL BISULFATE
     Route: 048
     Dates: end: 20170124
  34. CLOPIDOGREL [Suspect]
     Active Substance: CLOPIDOGREL BISULFATE
     Route: 048
  35. CLOPIDOGREL [Suspect]
     Active Substance: CLOPIDOGREL BISULFATE
     Route: 048
     Dates: end: 20170124
  36. CLOPIDOGREL [Suspect]
     Active Substance: CLOPIDOGREL BISULFATE
     Dates: end: 20170124
  37. CLOPIDOGREL [Suspect]
     Active Substance: CLOPIDOGREL BISULFATE
     Route: 048
  38. FENTANYL [Suspect]
     Active Substance: FENTANYL
     Indication: Product used for unknown indication
  39. FENTANYL [Suspect]
     Active Substance: FENTANYL
     Indication: Product used for unknown indication
     Dosage: 75 MICROGRAM/HOUR AND PLASTER CHANGE EVERY 3 DAYS
  40. ASPIRIN [Suspect]
     Active Substance: ASPIRIN
     Indication: Product used for unknown indication
  41. ASPIRIN [Suspect]
     Active Substance: ASPIRIN
  42. HYDROCHLOROTHIAZIDE\LOSARTAN [Suspect]
     Active Substance: HYDROCHLOROTHIAZIDE\LOSARTAN
     Indication: Product used for unknown indication
     Dosage: 1 DOSAGE FORM, QD (100/25 MG)?START DATE: 2016?ROUTE: UNKNOWN
  43. NADROPARIN CALCIUM [Concomitant]
     Active Substance: NADROPARIN CALCIUM
     Indication: Product used for unknown indication
  44. NADROPARIN CALCIUM [Concomitant]
     Active Substance: NADROPARIN CALCIUM
  45. NADROPARIN CALCIUM [Concomitant]
     Active Substance: NADROPARIN CALCIUM
  46. NADROPARIN CALCIUM [Concomitant]
     Active Substance: NADROPARIN CALCIUM
  47. NADROPARIN CALCIUM [Concomitant]
     Active Substance: NADROPARIN CALCIUM
  48. NADROPARIN CALCIUM [Concomitant]
     Active Substance: NADROPARIN CALCIUM
  49. NADROPARIN CALCIUM [Concomitant]
     Active Substance: NADROPARIN CALCIUM
  50. NADROPARIN CALCIUM [Concomitant]
     Active Substance: NADROPARIN CALCIUM
  51. NADROPARIN CALCIUM [Concomitant]
     Active Substance: NADROPARIN CALCIUM
  52. NADROPARIN CALCIUM [Concomitant]
     Active Substance: NADROPARIN CALCIUM
  53. NADROPARIN CALCIUM [Concomitant]
     Active Substance: NADROPARIN CALCIUM
  54. NADROPARIN CALCIUM [Concomitant]
     Active Substance: NADROPARIN CALCIUM
  55. NADROPARIN CALCIUM [Concomitant]
     Active Substance: NADROPARIN CALCIUM
  56. NADROPARIN CALCIUM [Concomitant]
     Active Substance: NADROPARIN CALCIUM
  57. NADROPARIN CALCIUM [Concomitant]
     Active Substance: NADROPARIN CALCIUM
  58. NADROPARIN CALCIUM [Concomitant]
     Active Substance: NADROPARIN CALCIUM
  59. NADROPARIN CALCIUM [Concomitant]
     Active Substance: NADROPARIN CALCIUM
  60. NADROPARIN CALCIUM [Concomitant]
     Active Substance: NADROPARIN CALCIUM
     Dosage: 5700 IU, QD
     Route: 058
  61. NADROPARIN CALCIUM [Concomitant]
     Active Substance: NADROPARIN CALCIUM
     Dosage: 5700 IU, QD
     Route: 058
  62. NADROPARIN CALCIUM [Concomitant]
     Active Substance: NADROPARIN CALCIUM
     Dosage: 5700 IU, QD
     Route: 058
  63. NADROPARIN CALCIUM [Concomitant]
     Active Substance: NADROPARIN CALCIUM
  64. NADROPARIN CALCIUM [Concomitant]
     Active Substance: NADROPARIN CALCIUM
  65. NADROPARIN CALCIUM [Concomitant]
     Active Substance: NADROPARIN CALCIUM
  66. NADROPARIN CALCIUM [Concomitant]
     Active Substance: NADROPARIN CALCIUM
  67. NADROPARIN CALCIUM [Concomitant]
     Active Substance: NADROPARIN CALCIUM
  68. NADROPARIN CALCIUM [Concomitant]
     Active Substance: NADROPARIN CALCIUM
  69. NADROPARIN CALCIUM [Concomitant]
     Active Substance: NADROPARIN CALCIUM
     Route: 058
  70. NADROPARIN CALCIUM [Concomitant]
     Active Substance: NADROPARIN CALCIUM
  71. NADROPARIN CALCIUM [Concomitant]
     Active Substance: NADROPARIN CALCIUM
  72. NADROPARIN CALCIUM [Concomitant]
     Active Substance: NADROPARIN CALCIUM
  73. NADROPARIN CALCIUM [Concomitant]
     Active Substance: NADROPARIN CALCIUM
  74. NADROPARIN CALCIUM [Concomitant]
     Active Substance: NADROPARIN CALCIUM
  75. Riopan [Concomitant]
     Indication: Product used for unknown indication
     Dosage: 1600 MG, QD, ORAL
  76. Riopan [Concomitant]
  77. Riopan [Concomitant]
     Dosage: 4800 MG, QD, ORAL
  78. Riopan [Concomitant]
  79. TORSEMIDE [Suspect]
     Active Substance: TORSEMIDE
     Indication: Product used for unknown indication
     Dosage: 5 MG, QD
  80. TORSEMIDE [Suspect]
     Active Substance: TORSEMIDE
     Indication: Product used for unknown indication
     Dosage: 1 DOSAGE FORM, QD
  81. TORSEMIDE [Suspect]
     Active Substance: TORSEMIDE
     Dosage: 5 MG, QD, FIRST ADMIN DATE: 2017-01-24
  82. TORSEMIDE [Suspect]
     Active Substance: TORSEMIDE
  83. TORSEMIDE [Suspect]
     Active Substance: TORSEMIDE
     Dosage: UNK UNK, QD,( DOSE: 1, 1X/DAY)
  84. SODIUM CHLORIDE [Concomitant]
     Active Substance: SODIUM CHLORIDE
     Indication: Product used for unknown indication
     Dosage: 1 DOSAGE FORM
  85. SODIUM CHLORIDE [Concomitant]
     Active Substance: SODIUM CHLORIDE
  86. SODIUM CHLORIDE [Concomitant]
     Active Substance: SODIUM CHLORIDE
  87. SODIUM CHLORIDE [Concomitant]
     Active Substance: SODIUM CHLORIDE
  88. SODIUM CHLORIDE [Concomitant]
     Active Substance: SODIUM CHLORIDE
  89. SODIUM CHLORIDE [Concomitant]
     Active Substance: SODIUM CHLORIDE
  90. SODIUM CHLORIDE [Concomitant]
     Active Substance: SODIUM CHLORIDE
  91. SODIUM CHLORIDE [Concomitant]
     Active Substance: SODIUM CHLORIDE
  92. SODIUM CHLORIDE [Concomitant]
     Active Substance: SODIUM CHLORIDE
  93. SODIUM CHLORIDE [Concomitant]
     Active Substance: SODIUM CHLORIDE
  94. SODIUM CHLORIDE [Concomitant]
     Active Substance: SODIUM CHLORIDE
  95. SODIUM CHLORIDE [Concomitant]
     Active Substance: SODIUM CHLORIDE
  96. SODIUM CHLORIDE [Concomitant]
     Active Substance: SODIUM CHLORIDE
     Dosage: 3 DOSAGE FORM, QD?ROUTE: UNKNOWN
  97. SODIUM CHLORIDE [Concomitant]
     Active Substance: SODIUM CHLORIDE
     Dosage: UNK, QD?ROUTE: UNKNOWN
  98. SODIUM CHLORIDE [Concomitant]
     Active Substance: SODIUM CHLORIDE
     Dosage: UNK, QD?ROUTE: UNKNOWN
  99. SODIUM CHLORIDE [Concomitant]
     Active Substance: SODIUM CHLORIDE
     Dosage: 1 DOSAGE FORM, QD?ROUTE: UNKNOWN
  100. SODIUM CHLORIDE [Concomitant]
     Active Substance: SODIUM CHLORIDE
     Dosage: UNK, QD?ROUTE: UNKNOWN
  101. SODIUM CHLORIDE [Concomitant]
     Active Substance: SODIUM CHLORIDE
     Dosage: UNK, QD?ROUTE: UNKNOWN
  102. SODIUM CHLORIDE [Concomitant]
     Active Substance: SODIUM CHLORIDE
  103. SODIUM CHLORIDE [Concomitant]
     Active Substance: SODIUM CHLORIDE
  104. SODIUM CHLORIDE [Concomitant]
     Active Substance: SODIUM CHLORIDE
  105. SODIUM CHLORIDE [Concomitant]
     Active Substance: SODIUM CHLORIDE
     Dosage: UNK, QD
  106. SODIUM CHLORIDE [Concomitant]
     Active Substance: SODIUM CHLORIDE
  107. SODIUM CHLORIDE [Concomitant]
     Active Substance: SODIUM CHLORIDE
  108. SODIUM CHLORIDE [Concomitant]
     Active Substance: SODIUM CHLORIDE
  109. SODIUM CHLORIDE [Concomitant]
     Active Substance: SODIUM CHLORIDE
  110. SODIUM CHLORIDE [Concomitant]
     Active Substance: SODIUM CHLORIDE
  111. SODIUM CHLORIDE [Concomitant]
     Active Substance: SODIUM CHLORIDE
  112. SODIUM CHLORIDE [Concomitant]
     Active Substance: SODIUM CHLORIDE
  113. SODIUM CHLORIDE [Concomitant]
     Active Substance: SODIUM CHLORIDE
     Dosage: UNK, QD
  114. SODIUM CHLORIDE [Concomitant]
     Active Substance: SODIUM CHLORIDE
  115. SODIUM CHLORIDE [Concomitant]
     Active Substance: SODIUM CHLORIDE
  116. SODIUM CHLORIDE [Concomitant]
     Active Substance: SODIUM CHLORIDE
  117. SODIUM CHLORIDE [Concomitant]
     Active Substance: SODIUM CHLORIDE
  118. SODIUM CHLORIDE [Concomitant]
     Active Substance: SODIUM CHLORIDE
  119. SODIUM CHLORIDE [Concomitant]
     Active Substance: SODIUM CHLORIDE
  120. SODIUM CHLORIDE [Concomitant]
     Active Substance: SODIUM CHLORIDE
  121. SODIUM CHLORIDE [Concomitant]
     Active Substance: SODIUM CHLORIDE
     Dosage: UNK, QD
  122. SODIUM CHLORIDE [Concomitant]
     Active Substance: SODIUM CHLORIDE
  123. SODIUM CHLORIDE [Concomitant]
     Active Substance: SODIUM CHLORIDE
  124. SODIUM CHLORIDE [Concomitant]
     Active Substance: SODIUM CHLORIDE
  125. SODIUM CHLORIDE [Concomitant]
     Active Substance: SODIUM CHLORIDE
     Dosage: UNK, QD
  126. SODIUM CHLORIDE [Concomitant]
     Active Substance: SODIUM CHLORIDE
  127. SODIUM CHLORIDE [Concomitant]
     Active Substance: SODIUM CHLORIDE
  128. SODIUM CHLORIDE [Concomitant]
     Active Substance: SODIUM CHLORIDE
  129. SODIUM CHLORIDE [Concomitant]
     Active Substance: SODIUM CHLORIDE
     Dosage: UNK, QD
  130. SODIUM CHLORIDE [Concomitant]
     Active Substance: SODIUM CHLORIDE
  131. SODIUM CHLORIDE [Concomitant]
     Active Substance: SODIUM CHLORIDE
  132. SODIUM CHLORIDE [Concomitant]
     Active Substance: SODIUM CHLORIDE
  133. SODIUM CHLORIDE [Concomitant]
     Active Substance: SODIUM CHLORIDE
     Dosage: UNK, QD
  134. SODIUM CHLORIDE [Concomitant]
     Active Substance: SODIUM CHLORIDE
  135. SODIUM CHLORIDE [Concomitant]
     Active Substance: SODIUM CHLORIDE
  136. SODIUM CHLORIDE [Concomitant]
     Active Substance: SODIUM CHLORIDE
  137. SODIUM CHLORIDE [Concomitant]
     Active Substance: SODIUM CHLORIDE
  138. SODIUM CHLORIDE [Concomitant]
     Active Substance: SODIUM CHLORIDE
  139. SODIUM CHLORIDE [Concomitant]
     Active Substance: SODIUM CHLORIDE
  140. SODIUM CHLORIDE [Concomitant]
     Active Substance: SODIUM CHLORIDE
  141. SODIUM CHLORIDE [Concomitant]
     Active Substance: SODIUM CHLORIDE
     Dosage: UNK, QD
  142. SODIUM CHLORIDE [Concomitant]
     Active Substance: SODIUM CHLORIDE
  143. SODIUM CHLORIDE [Concomitant]
     Active Substance: SODIUM CHLORIDE
  144. SODIUM CHLORIDE [Concomitant]
     Active Substance: SODIUM CHLORIDE
  145. SODIUM CHLORIDE [Concomitant]
     Active Substance: SODIUM CHLORIDE
  146. SODIUM CHLORIDE [Concomitant]
     Active Substance: SODIUM CHLORIDE
  147. SODIUM CHLORIDE [Concomitant]
     Active Substance: SODIUM CHLORIDE
  148. SODIUM CHLORIDE [Concomitant]
     Active Substance: SODIUM CHLORIDE
  149. SODIUM CHLORIDE [Concomitant]
     Active Substance: SODIUM CHLORIDE
     Dosage: UNK, QD
  150. SODIUM CHLORIDE [Concomitant]
     Active Substance: SODIUM CHLORIDE
  151. SODIUM CHLORIDE [Concomitant]
     Active Substance: SODIUM CHLORIDE
  152. SODIUM CHLORIDE [Concomitant]
     Active Substance: SODIUM CHLORIDE
  153. SODIUM CHLORIDE [Concomitant]
     Active Substance: SODIUM CHLORIDE
     Dosage: UNK, QD
  154. SODIUM CHLORIDE [Concomitant]
     Active Substance: SODIUM CHLORIDE
  155. SODIUM CHLORIDE [Concomitant]
     Active Substance: SODIUM CHLORIDE
  156. SODIUM CHLORIDE [Concomitant]
     Active Substance: SODIUM CHLORIDE
  157. SODIUM CHLORIDE [Concomitant]
     Active Substance: SODIUM CHLORIDE
  158. SODIUM CHLORIDE [Concomitant]
     Active Substance: SODIUM CHLORIDE
  159. SODIUM CHLORIDE [Concomitant]
     Active Substance: SODIUM CHLORIDE
  160. SODIUM CHLORIDE [Concomitant]
     Active Substance: SODIUM CHLORIDE
  161. SODIUM CHLORIDE [Concomitant]
     Active Substance: SODIUM CHLORIDE
     Dosage: UNK, QD
  162. SODIUM CHLORIDE [Concomitant]
     Active Substance: SODIUM CHLORIDE
  163. SODIUM CHLORIDE [Concomitant]
     Active Substance: SODIUM CHLORIDE
  164. SODIUM CHLORIDE [Concomitant]
     Active Substance: SODIUM CHLORIDE
  165. SODIUM CHLORIDE [Concomitant]
     Active Substance: SODIUM CHLORIDE
  166. SODIUM CHLORIDE [Concomitant]
     Active Substance: SODIUM CHLORIDE
  167. SODIUM CHLORIDE [Concomitant]
     Active Substance: SODIUM CHLORIDE
  168. SODIUM CHLORIDE [Concomitant]
     Active Substance: SODIUM CHLORIDE
  169. SODIUM CHLORIDE [Concomitant]
     Active Substance: SODIUM CHLORIDE
     Dosage: UNK, QD
  170. SODIUM CHLORIDE [Concomitant]
     Active Substance: SODIUM CHLORIDE
  171. SODIUM CHLORIDE [Concomitant]
     Active Substance: SODIUM CHLORIDE
  172. SODIUM CHLORIDE [Concomitant]
     Active Substance: SODIUM CHLORIDE
  173. SODIUM CHLORIDE [Concomitant]
     Active Substance: SODIUM CHLORIDE
     Dosage: UNK, QD
  174. SODIUM CHLORIDE [Concomitant]
     Active Substance: SODIUM CHLORIDE
  175. SODIUM CHLORIDE [Concomitant]
     Active Substance: SODIUM CHLORIDE
  176. SODIUM CHLORIDE [Concomitant]
     Active Substance: SODIUM CHLORIDE
  177. SODIUM CHLORIDE [Concomitant]
     Active Substance: SODIUM CHLORIDE
     Dosage: UNK, QD
  178. SODIUM CHLORIDE [Concomitant]
     Active Substance: SODIUM CHLORIDE
  179. SODIUM CHLORIDE [Concomitant]
     Active Substance: SODIUM CHLORIDE
  180. SODIUM CHLORIDE [Concomitant]
     Active Substance: SODIUM CHLORIDE
  181. SODIUM CHLORIDE [Concomitant]
     Active Substance: SODIUM CHLORIDE
  182. SODIUM CHLORIDE [Concomitant]
     Active Substance: SODIUM CHLORIDE
  183. SODIUM CHLORIDE [Concomitant]
     Active Substance: SODIUM CHLORIDE
  184. SODIUM CHLORIDE [Concomitant]
     Active Substance: SODIUM CHLORIDE
  185. SODIUM CHLORIDE [Concomitant]
     Active Substance: SODIUM CHLORIDE
     Dosage: UNK, QD
  186. SODIUM CHLORIDE [Concomitant]
     Active Substance: SODIUM CHLORIDE
  187. SODIUM CHLORIDE [Concomitant]
     Active Substance: SODIUM CHLORIDE
  188. SODIUM CHLORIDE [Concomitant]
     Active Substance: SODIUM CHLORIDE
  189. SODIUM CHLORIDE [Concomitant]
     Active Substance: SODIUM CHLORIDE
     Dosage: UNK, QD
  190. SODIUM CHLORIDE [Concomitant]
     Active Substance: SODIUM CHLORIDE
  191. SODIUM CHLORIDE [Concomitant]
     Active Substance: SODIUM CHLORIDE
  192. SODIUM CHLORIDE [Concomitant]
     Active Substance: SODIUM CHLORIDE
  193. SODIUM CHLORIDE [Concomitant]
     Active Substance: SODIUM CHLORIDE
     Dosage: UNK, QD
  194. SODIUM CHLORIDE [Concomitant]
     Active Substance: SODIUM CHLORIDE
  195. SODIUM CHLORIDE [Concomitant]
     Active Substance: SODIUM CHLORIDE
  196. SODIUM CHLORIDE [Concomitant]
     Active Substance: SODIUM CHLORIDE
  197. SODIUM CHLORIDE [Concomitant]
     Active Substance: SODIUM CHLORIDE
  198. SODIUM CHLORIDE [Concomitant]
     Active Substance: SODIUM CHLORIDE
  199. SODIUM CHLORIDE [Concomitant]
     Active Substance: SODIUM CHLORIDE
  200. SODIUM CHLORIDE [Concomitant]
     Active Substance: SODIUM CHLORIDE
  201. SODIUM CHLORIDE [Concomitant]
     Active Substance: SODIUM CHLORIDE
     Dosage: UNK, QD
  202. SODIUM CHLORIDE [Concomitant]
     Active Substance: SODIUM CHLORIDE
  203. SODIUM CHLORIDE [Concomitant]
     Active Substance: SODIUM CHLORIDE
  204. SODIUM CHLORIDE [Concomitant]
     Active Substance: SODIUM CHLORIDE
  205. SODIUM CHLORIDE [Concomitant]
     Active Substance: SODIUM CHLORIDE
     Dosage: UNK, QD
  206. SODIUM CHLORIDE [Concomitant]
     Active Substance: SODIUM CHLORIDE
  207. SODIUM CHLORIDE [Concomitant]
     Active Substance: SODIUM CHLORIDE
  208. SODIUM CHLORIDE [Concomitant]
     Active Substance: SODIUM CHLORIDE
  209. SODIUM CHLORIDE [Concomitant]
     Active Substance: SODIUM CHLORIDE
     Dosage: UNK, QD
  210. SODIUM CHLORIDE [Concomitant]
     Active Substance: SODIUM CHLORIDE
  211. SODIUM CHLORIDE [Concomitant]
     Active Substance: SODIUM CHLORIDE
  212. SODIUM CHLORIDE [Concomitant]
     Active Substance: SODIUM CHLORIDE
  213. SODIUM CHLORIDE [Concomitant]
     Active Substance: SODIUM CHLORIDE
     Dosage: UNK, QD
  214. SODIUM CHLORIDE [Concomitant]
     Active Substance: SODIUM CHLORIDE
  215. SODIUM CHLORIDE [Concomitant]
     Active Substance: SODIUM CHLORIDE
  216. SODIUM CHLORIDE [Concomitant]
     Active Substance: SODIUM CHLORIDE
  217. SODIUM CHLORIDE [Concomitant]
     Active Substance: SODIUM CHLORIDE
     Dosage: UNK, QD
  218. SODIUM CHLORIDE [Concomitant]
     Active Substance: SODIUM CHLORIDE
  219. SODIUM CHLORIDE [Concomitant]
     Active Substance: SODIUM CHLORIDE
  220. SODIUM CHLORIDE [Concomitant]
     Active Substance: SODIUM CHLORIDE
  221. SODIUM CHLORIDE [Concomitant]
     Active Substance: SODIUM CHLORIDE
     Dosage: UNK, QD
  222. SODIUM CHLORIDE [Concomitant]
     Active Substance: SODIUM CHLORIDE
  223. SODIUM CHLORIDE [Concomitant]
     Active Substance: SODIUM CHLORIDE
  224. SODIUM CHLORIDE [Concomitant]
     Active Substance: SODIUM CHLORIDE
  225. SODIUM CHLORIDE [Concomitant]
     Active Substance: SODIUM CHLORIDE
     Dosage: UNK, QD
  226. SODIUM CHLORIDE [Concomitant]
     Active Substance: SODIUM CHLORIDE
  227. SODIUM CHLORIDE [Concomitant]
     Active Substance: SODIUM CHLORIDE
  228. SODIUM CHLORIDE [Concomitant]
     Active Substance: SODIUM CHLORIDE
  229. SODIUM CHLORIDE [Concomitant]
     Active Substance: SODIUM CHLORIDE
     Dosage: UNK, QD
  230. SODIUM CHLORIDE [Concomitant]
     Active Substance: SODIUM CHLORIDE
  231. SODIUM CHLORIDE [Concomitant]
     Active Substance: SODIUM CHLORIDE
  232. SODIUM CHLORIDE [Concomitant]
     Active Substance: SODIUM CHLORIDE
  233. SODIUM CHLORIDE [Concomitant]
     Active Substance: SODIUM CHLORIDE
     Dosage: UNK, QD
  234. SODIUM CHLORIDE [Concomitant]
     Active Substance: SODIUM CHLORIDE
  235. SODIUM CHLORIDE [Concomitant]
     Active Substance: SODIUM CHLORIDE
  236. SODIUM CHLORIDE [Concomitant]
     Active Substance: SODIUM CHLORIDE
  237. SODIUM CHLORIDE [Concomitant]
     Active Substance: SODIUM CHLORIDE
     Dosage: UNK, QD
  238. SODIUM CHLORIDE [Concomitant]
     Active Substance: SODIUM CHLORIDE
  239. SODIUM CHLORIDE [Concomitant]
     Active Substance: SODIUM CHLORIDE
  240. SODIUM CHLORIDE [Concomitant]
     Active Substance: SODIUM CHLORIDE
  241. SODIUM CHLORIDE [Concomitant]
     Active Substance: SODIUM CHLORIDE
     Dosage: UNK, QD
  242. SODIUM CHLORIDE [Concomitant]
     Active Substance: SODIUM CHLORIDE
  243. SODIUM CHLORIDE [Concomitant]
     Active Substance: SODIUM CHLORIDE
     Dosage: UNK, QD
  244. SODIUM CHLORIDE [Concomitant]
     Active Substance: SODIUM CHLORIDE
  245. SODIUM CHLORIDE [Concomitant]
     Active Substance: SODIUM CHLORIDE
     Dosage: UNK, QD
  246. SODIUM CHLORIDE [Concomitant]
     Active Substance: SODIUM CHLORIDE
  247. SODIUM CHLORIDE [Concomitant]
     Active Substance: SODIUM CHLORIDE
     Dosage: UNK, QD
  248. SODIUM CHLORIDE [Concomitant]
     Active Substance: SODIUM CHLORIDE
  249. SODIUM CHLORIDE [Concomitant]
     Active Substance: SODIUM CHLORIDE
     Dosage: UNK, QD
  250. SODIUM CHLORIDE [Concomitant]
     Active Substance: SODIUM CHLORIDE
  251. SODIUM CHLORIDE [Concomitant]
     Active Substance: SODIUM CHLORIDE
     Dosage: UNK, QD
  252. SODIUM CHLORIDE [Concomitant]
     Active Substance: SODIUM CHLORIDE
  253. SODIUM CHLORIDE [Concomitant]
     Active Substance: SODIUM CHLORIDE
     Dosage: UNK, QD
  254. SODIUM CHLORIDE [Concomitant]
     Active Substance: SODIUM CHLORIDE
  255. SODIUM CHLORIDE [Concomitant]
     Active Substance: SODIUM CHLORIDE
     Dosage: UNK, QD
  256. SODIUM CHLORIDE [Concomitant]
     Active Substance: SODIUM CHLORIDE
  257. SODIUM CHLORIDE [Concomitant]
     Active Substance: SODIUM CHLORIDE
     Dosage: UNK, QD
  258. SODIUM CHLORIDE [Concomitant]
     Active Substance: SODIUM CHLORIDE
  259. SODIUM CHLORIDE [Concomitant]
     Active Substance: SODIUM CHLORIDE
     Dosage: UNK, QD
  260. SODIUM CHLORIDE [Concomitant]
     Active Substance: SODIUM CHLORIDE
  261. SODIUM CHLORIDE [Concomitant]
     Active Substance: SODIUM CHLORIDE
     Dosage: UNK, QD
  262. SODIUM CHLORIDE [Concomitant]
     Active Substance: SODIUM CHLORIDE
  263. SODIUM CHLORIDE [Concomitant]
     Active Substance: SODIUM CHLORIDE
     Dosage: UNK, QD
  264. SODIUM CHLORIDE [Concomitant]
     Active Substance: SODIUM CHLORIDE
  265. SODIUM CHLORIDE [Concomitant]
     Active Substance: SODIUM CHLORIDE
     Dosage: UNK, QD
  266. SODIUM CHLORIDE [Concomitant]
     Active Substance: SODIUM CHLORIDE
  267. SODIUM CHLORIDE [Concomitant]
     Active Substance: SODIUM CHLORIDE
     Dosage: UNK, QD
  268. SODIUM CHLORIDE [Concomitant]
     Active Substance: SODIUM CHLORIDE
     Dosage: 3 DOSAGE FORM, QD?ROUTE: UNKNOWN
  269. SODIUM CHLORIDE [Concomitant]
     Active Substance: SODIUM CHLORIDE
  270. SODIUM CHLORIDE [Concomitant]
     Active Substance: SODIUM CHLORIDE
     Dosage: UNK, QD
  271. SODIUM CHLORIDE [Concomitant]
     Active Substance: SODIUM CHLORIDE
  272. SODIUM CHLORIDE [Concomitant]
     Active Substance: SODIUM CHLORIDE
     Dosage: UNK, QD
  273. SODIUM CHLORIDE [Concomitant]
     Active Substance: SODIUM CHLORIDE
  274. SODIUM CHLORIDE [Concomitant]
     Active Substance: SODIUM CHLORIDE
     Dosage: UNK, QD
  275. SODIUM CHLORIDE [Concomitant]
     Active Substance: SODIUM CHLORIDE
  276. SODIUM CHLORIDE [Concomitant]
     Active Substance: SODIUM CHLORIDE
     Dosage: UNK, QD
  277. SODIUM CHLORIDE [Concomitant]
     Active Substance: SODIUM CHLORIDE
  278. SODIUM CHLORIDE [Concomitant]
     Active Substance: SODIUM CHLORIDE
     Dosage: UNK, QD
  279. SODIUM CHLORIDE [Concomitant]
     Active Substance: SODIUM CHLORIDE
  280. SODIUM CHLORIDE [Concomitant]
     Active Substance: SODIUM CHLORIDE
     Dosage: UNK, QD
  281. SODIUM CHLORIDE [Concomitant]
     Active Substance: SODIUM CHLORIDE
  282. SODIUM CHLORIDE [Concomitant]
     Active Substance: SODIUM CHLORIDE
     Dosage: UNK, QD
  283. SODIUM CHLORIDE [Concomitant]
     Active Substance: SODIUM CHLORIDE
  284. SODIUM CHLORIDE [Concomitant]
     Active Substance: SODIUM CHLORIDE
     Dosage: UNK, QD
  285. SODIUM CHLORIDE [Concomitant]
     Active Substance: SODIUM CHLORIDE
  286. SODIUM CHLORIDE [Concomitant]
     Active Substance: SODIUM CHLORIDE
     Dosage: UNK, QD
  287. SODIUM CHLORIDE [Concomitant]
     Active Substance: SODIUM CHLORIDE
  288. SODIUM CHLORIDE [Concomitant]
     Active Substance: SODIUM CHLORIDE
     Dosage: UNK, QD
  289. SODIUM CHLORIDE [Concomitant]
     Active Substance: SODIUM CHLORIDE
  290. SODIUM CHLORIDE [Concomitant]
     Active Substance: SODIUM CHLORIDE
  291. SODIUM CHLORIDE [Concomitant]
     Active Substance: SODIUM CHLORIDE
  292. SODIUM CHLORIDE [Concomitant]
     Active Substance: SODIUM CHLORIDE
  293. SODIUM CHLORIDE [Concomitant]
     Active Substance: SODIUM CHLORIDE
  294. SODIUM CHLORIDE [Concomitant]
     Active Substance: SODIUM CHLORIDE
  295. SODIUM CHLORIDE [Concomitant]
     Active Substance: SODIUM CHLORIDE
  296. SODIUM CHLORIDE [Concomitant]
     Active Substance: SODIUM CHLORIDE
  297. SODIUM CHLORIDE [Concomitant]
     Active Substance: SODIUM CHLORIDE
  298. SODIUM CHLORIDE [Concomitant]
     Active Substance: SODIUM CHLORIDE
  299. SODIUM CHLORIDE [Concomitant]
     Active Substance: SODIUM CHLORIDE
  300. SODIUM CHLORIDE [Concomitant]
     Active Substance: SODIUM CHLORIDE
  301. SODIUM CHLORIDE [Concomitant]
     Active Substance: SODIUM CHLORIDE
  302. SODIUM CHLORIDE [Concomitant]
     Active Substance: SODIUM CHLORIDE
  303. SODIUM CHLORIDE [Concomitant]
     Active Substance: SODIUM CHLORIDE
  304. SODIUM CHLORIDE [Concomitant]
     Active Substance: SODIUM CHLORIDE
  305. SODIUM CHLORIDE [Concomitant]
     Active Substance: SODIUM CHLORIDE
  306. SODIUM CHLORIDE [Concomitant]
     Active Substance: SODIUM CHLORIDE
  307. SODIUM CHLORIDE [Concomitant]
     Active Substance: SODIUM CHLORIDE
  308. SODIUM CHLORIDE [Concomitant]
     Active Substance: SODIUM CHLORIDE
  309. SODIUM CHLORIDE [Concomitant]
     Active Substance: SODIUM CHLORIDE
  310. SODIUM CHLORIDE [Concomitant]
     Active Substance: SODIUM CHLORIDE
  311. SODIUM CHLORIDE [Concomitant]
     Active Substance: SODIUM CHLORIDE
  312. SODIUM CHLORIDE [Concomitant]
     Active Substance: SODIUM CHLORIDE
  313. SODIUM CHLORIDE [Concomitant]
     Active Substance: SODIUM CHLORIDE
  314. SODIUM CHLORIDE [Concomitant]
     Active Substance: SODIUM CHLORIDE
  315. SODIUM CHLORIDE [Concomitant]
     Active Substance: SODIUM CHLORIDE
  316. SODIUM CHLORIDE [Concomitant]
     Active Substance: SODIUM CHLORIDE
  317. SODIUM CHLORIDE [Concomitant]
     Active Substance: SODIUM CHLORIDE
  318. SODIUM CHLORIDE [Concomitant]
     Active Substance: SODIUM CHLORIDE
  319. LEVOSIMENDAN [Concomitant]
     Active Substance: LEVOSIMENDAN
     Indication: Product used for unknown indication
  320. LEVOSIMENDAN [Concomitant]
     Active Substance: LEVOSIMENDAN
  321. LEVOSIMENDAN [Concomitant]
     Active Substance: LEVOSIMENDAN
  322. LEVOSIMENDAN [Concomitant]
     Active Substance: LEVOSIMENDAN
  323. LEVOSIMENDAN [Concomitant]
     Active Substance: LEVOSIMENDAN
  324. LEVOSIMENDAN [Concomitant]
     Active Substance: LEVOSIMENDAN
  325. LEVOSIMENDAN [Concomitant]
     Active Substance: LEVOSIMENDAN
  326. LEVOSIMENDAN [Concomitant]
     Active Substance: LEVOSIMENDAN
  327. LEVOSIMENDAN [Concomitant]
     Active Substance: LEVOSIMENDAN
  328. LEVOSIMENDAN [Concomitant]
     Active Substance: LEVOSIMENDAN
  329. LEVOSIMENDAN [Concomitant]
     Active Substance: LEVOSIMENDAN
  330. LEVOSIMENDAN [Concomitant]
     Active Substance: LEVOSIMENDAN
  331. LEVOSIMENDAN [Concomitant]
     Active Substance: LEVOSIMENDAN
  332. LEVOSIMENDAN [Concomitant]
     Active Substance: LEVOSIMENDAN
  333. LEVOSIMENDAN [Concomitant]
     Active Substance: LEVOSIMENDAN
  334. LEVOSIMENDAN [Concomitant]
     Active Substance: LEVOSIMENDAN
  335. LEVOSIMENDAN [Concomitant]
     Active Substance: LEVOSIMENDAN
  336. LEVOSIMENDAN [Concomitant]
     Active Substance: LEVOSIMENDAN
  337. LEVOSIMENDAN [Concomitant]
     Active Substance: LEVOSIMENDAN
  338. LEVOSIMENDAN [Concomitant]
     Active Substance: LEVOSIMENDAN
  339. LEVOSIMENDAN [Concomitant]
     Active Substance: LEVOSIMENDAN
  340. LEVOSIMENDAN [Concomitant]
     Active Substance: LEVOSIMENDAN
  341. LEVOSIMENDAN [Concomitant]
     Active Substance: LEVOSIMENDAN
  342. LEVOSIMENDAN [Concomitant]
     Active Substance: LEVOSIMENDAN
  343. LEVOSIMENDAN [Concomitant]
     Active Substance: LEVOSIMENDAN
  344. LEVOSIMENDAN [Concomitant]
     Active Substance: LEVOSIMENDAN
  345. LEVOSIMENDAN [Concomitant]
     Active Substance: LEVOSIMENDAN
  346. LEVOSIMENDAN [Concomitant]
     Active Substance: LEVOSIMENDAN
  347. LEVOSIMENDAN [Concomitant]
     Active Substance: LEVOSIMENDAN
  348. LEVOSIMENDAN [Concomitant]
     Active Substance: LEVOSIMENDAN
  349. LEVOSIMENDAN [Concomitant]
     Active Substance: LEVOSIMENDAN
  350. LEVOSIMENDAN [Concomitant]
     Active Substance: LEVOSIMENDAN
  351. LEVOSIMENDAN [Concomitant]
     Active Substance: LEVOSIMENDAN
  352. LEVOSIMENDAN [Concomitant]
     Active Substance: LEVOSIMENDAN
  353. LEVOSIMENDAN [Concomitant]
     Active Substance: LEVOSIMENDAN
  354. LEVOSIMENDAN [Concomitant]
     Active Substance: LEVOSIMENDAN
  355. LEVOSIMENDAN [Concomitant]
     Active Substance: LEVOSIMENDAN
  356. LEVOSIMENDAN [Concomitant]
     Active Substance: LEVOSIMENDAN
  357. LEVOSIMENDAN [Concomitant]
     Active Substance: LEVOSIMENDAN
  358. LEVOSIMENDAN [Concomitant]
     Active Substance: LEVOSIMENDAN
  359. LEVOSIMENDAN [Concomitant]
     Active Substance: LEVOSIMENDAN
  360. LEVOSIMENDAN [Concomitant]
     Active Substance: LEVOSIMENDAN
  361. LEVOSIMENDAN [Concomitant]
     Active Substance: LEVOSIMENDAN
  362. LEVOSIMENDAN [Concomitant]
     Active Substance: LEVOSIMENDAN
  363. LEVOSIMENDAN [Concomitant]
     Active Substance: LEVOSIMENDAN
  364. LEVOSIMENDAN [Concomitant]
     Active Substance: LEVOSIMENDAN
  365. LEVOSIMENDAN [Concomitant]
     Active Substance: LEVOSIMENDAN
  366. LEVOSIMENDAN [Concomitant]
     Active Substance: LEVOSIMENDAN
  367. LEVOSIMENDAN [Concomitant]
     Active Substance: LEVOSIMENDAN
  368. ENOXAPARIN [Concomitant]
     Active Substance: ENOXAPARIN
     Indication: Product used for unknown indication
  369. ENOXAPARIN [Concomitant]
     Active Substance: ENOXAPARIN
  370. ENOXAPARIN [Concomitant]
     Active Substance: ENOXAPARIN
     Dosage: 0.5 MG, QD
  371. ENOXAPARIN [Concomitant]
     Active Substance: ENOXAPARIN
  372. ENOXAPARIN [Concomitant]
     Active Substance: ENOXAPARIN
  373. ENOXAPARIN [Concomitant]
     Active Substance: ENOXAPARIN
  374. ENOXAPARIN [Concomitant]
     Active Substance: ENOXAPARIN
     Dosage: 0.6 MG, QD
  375. ENOXAPARIN [Concomitant]
     Active Substance: ENOXAPARIN
     Dosage: 5 MG, QD
  376. ENOXAPARIN [Concomitant]
     Active Substance: ENOXAPARIN
     Dosage: 0.6 MG, QD?ROUTE: UNKNOWN
  377. ENOXAPARIN [Concomitant]
     Active Substance: ENOXAPARIN
     Dosage: 5 MG, QD?ROUTE: UNKNOWN
  378. ENOXAPARIN [Concomitant]
     Active Substance: ENOXAPARIN
     Dosage: 0.6 MG, QD?ROUTE: UNKNOWN
  379. ENOXAPARIN [Concomitant]
     Active Substance: ENOXAPARIN
     Dosage: 5 MG, QD, FIRST ADMIN DATE: 2016?ROUTE: UNKNOWN
  380. ENOXAPARIN [Concomitant]
     Active Substance: ENOXAPARIN
     Dosage: 0.6 MG, QD?ROUTE: UNKNOWN
  381. ENOXAPARIN [Concomitant]
     Active Substance: ENOXAPARIN
  382. ENOXAPARIN [Concomitant]
     Active Substance: ENOXAPARIN
     Dosage: UNK?ROUTE: UNKNOWN
  383. ENOXAPARIN [Concomitant]
     Active Substance: ENOXAPARIN
     Dosage: UNK?ROUTE: UNKNOWN
  384. ENOXAPARIN [Concomitant]
     Active Substance: ENOXAPARIN
     Dosage: UNK UNK, QD?ROUTE: UNKNOWN
  385. ENOXAPARIN [Concomitant]
     Active Substance: ENOXAPARIN
  386. ENOXAPARIN [Concomitant]
     Active Substance: ENOXAPARIN
  387. ENOXAPARIN [Concomitant]
     Active Substance: ENOXAPARIN
     Dosage: 0.6 MG, QD?ROUTE: UNKNOWN
  388. ENOXAPARIN [Concomitant]
     Active Substance: ENOXAPARIN
     Dosage: UNK UNK, QD?ROUTE: UNKNOWN
  389. ENOXAPARIN [Concomitant]
     Active Substance: ENOXAPARIN
     Dosage: 5 MG, QD?ROUTE: UNKNOWN
  390. ENOXAPARIN [Concomitant]
     Active Substance: ENOXAPARIN
     Dosage: 5 MG, QD?ROUTE: UNKNOWN
  391. ENOXAPARIN [Concomitant]
     Active Substance: ENOXAPARIN
  392. ENOXAPARIN [Concomitant]
     Active Substance: ENOXAPARIN
  393. VALSARTAN [Suspect]
     Active Substance: VALSARTAN
     Indication: Product used for unknown indication
  394. VALSARTAN [Suspect]
     Active Substance: VALSARTAN
  395. VALSARTAN [Suspect]
     Active Substance: VALSARTAN
  396. VALSARTAN [Suspect]
     Active Substance: VALSARTAN
  397. CERISA [Suspect]
     Active Substance: SULFACETAMIDE SODIUM\SULFUR
     Indication: Product used for unknown indication
     Dosage: 15 MG, FIRST ADMIN DATE: 2017-01-24
  398. CERISA [Suspect]
     Active Substance: SULFACETAMIDE SODIUM\SULFUR
  399. BISOPROLOL FUMARATE [Suspect]
     Active Substance: BISOPROLOL FUMARATE
     Indication: Product used for unknown indication
     Dosage: 5 MG, QD
  400. BISOPROLOL FUMARATE [Suspect]
     Active Substance: BISOPROLOL FUMARATE
     Indication: Product used for unknown indication
     Dosage: 5 MG, QD
  401. BISOPROLOL FUMARATE [Suspect]
     Active Substance: BISOPROLOL FUMARATE
     Dosage: 0.5 MG, QD
  402. BISOPROLOL FUMARATE [Suspect]
     Active Substance: BISOPROLOL FUMARATE
     Dosage: 5 MG, QD
  403. TROSPIUM CHLORIDE [Suspect]
     Active Substance: TROSPIUM CHLORIDE
     Indication: Product used for unknown indication
     Dosage: 15 MG, QD, FIRST ADMIN DATE: 24 JAN 2017
  404. TROSPIUM CHLORIDE [Suspect]
     Active Substance: TROSPIUM CHLORIDE
  405. FENTANYL TRANSDERMAL SYSTEM [Suspect]
     Active Substance: FENTANYL
     Indication: Product used for unknown indication
  406. FENTANYL TRANSDERMAL SYSTEM [Suspect]
     Active Substance: FENTANYL
     Dosage: 75 UG 1HR (75 MICROGRAM/HOUR AND PLASTER CHANGE EVERY 3 DAYS)
  407. SIMVASTATIN [Suspect]
     Active Substance: SIMVASTATIN
     Indication: Product used for unknown indication
  408. SIMVASTATIN [Suspect]
     Active Substance: SIMVASTATIN
     Indication: Product used for unknown indication
  409. MAGALDRATE [Concomitant]
     Active Substance: MAGALDRATE
     Indication: Product used for unknown indication
  410. MAGALDRATE [Concomitant]
     Active Substance: MAGALDRATE
  411. MAGALDRATE [Concomitant]
     Active Substance: MAGALDRATE
  412. MAGALDRATE [Concomitant]
     Active Substance: MAGALDRATE
     Dosage: 1600 MG, QD
  413. MAGALDRATE [Concomitant]
     Active Substance: MAGALDRATE
  414. MAGALDRATE [Concomitant]
     Active Substance: MAGALDRATE
     Dosage: 4800 MG, QD
  415. MAGALDRATE [Concomitant]
     Active Substance: MAGALDRATE
  416. MAGALDRATE [Concomitant]
     Active Substance: MAGALDRATE
  417. MAGALDRATE [Concomitant]
     Active Substance: MAGALDRATE
  418. MAGALDRATE [Concomitant]
     Active Substance: MAGALDRATE
  419. PHLOROGLUCINOL [Suspect]
     Active Substance: PHLOROGLUCINOL
     Indication: Product used for unknown indication
     Dosage: 45 MG, QD DAILY, FIRST ADMIN DATE: 24 JAN 2017
  420. PHLOROGLUCINOL [Suspect]
     Active Substance: PHLOROGLUCINOL
  421. PHLOROGLUCINOL [Suspect]
     Active Substance: PHLOROGLUCINOL
     Dosage: 15 MG, QD, FIRST ADMIN DATE: 24 JAN 2017
  422. PHLOROGLUCINOL [Suspect]
     Active Substance: PHLOROGLUCINOL
     Dosage: 15 MILLIGRAM, QD
  423. PHLOROGLUCINOL [Suspect]
     Active Substance: PHLOROGLUCINOL
  424. CLOPIDOGREL BISULFATE [Suspect]
     Active Substance: CLOPIDOGREL BISULFATE
     Indication: Product used for unknown indication
     Route: 050
  425. CLOPIDOGREL BISULFATE [Suspect]
     Active Substance: CLOPIDOGREL BISULFATE
     Route: 048
  426. CLOPIDOGREL BISULFATE [Suspect]
     Active Substance: CLOPIDOGREL BISULFATE
     Route: 048
  427. FUROSEMIDE\SPIRONOLACTONE [Suspect]
     Active Substance: FUROSEMIDE\SPIRONOLACTONE
     Indication: Product used for unknown indication
     Dosage: 1 DOSAGE FORM, QD (1 DOSAGE FORM, QD, 1X/DAY)
  428. FUROSEMIDE\SPIRONOLACTONE [Suspect]
     Active Substance: FUROSEMIDE\SPIRONOLACTONE
     Dosage: UNK UNK, QD (50MG/20MG)
  429. FUROSEMIDE\SPIRONOLACTONE [Suspect]
     Active Substance: FUROSEMIDE\SPIRONOLACTONE
  430. FUROSEMIDE\SPIRONOLACTONE [Suspect]
     Active Substance: FUROSEMIDE\SPIRONOLACTONE
     Dosage: UNK (UNK UNK, QD (50MG/20MG))
  431. METOPROLOL SUCCINATE [Suspect]
     Active Substance: METOPROLOL SUCCINATE
     Indication: Product used for unknown indication
  432. METOPROLOL SUCCINATE [Suspect]
     Active Substance: METOPROLOL SUCCINATE
     Indication: Product used for unknown indication
  433. METOPROLOL SUCCINATE [Suspect]
     Active Substance: METOPROLOL SUCCINATE
  434. METOPROLOL SUCCINATE [Suspect]
     Active Substance: METOPROLOL SUCCINATE
  435. HUMIRA [Suspect]
     Active Substance: ADALIMUMAB
     Indication: Rheumatoid arthritis
     Dosage: UNK, QW, SUBCUTANEOUS
     Dates: end: 20160927
  436. HUMIRA [Suspect]
     Active Substance: ADALIMUMAB
     Dosage: 1 DOSAGE FORM, Q2W, SUBCUTANEOUS
  437. HUMIRA [Suspect]
     Active Substance: ADALIMUMAB
     Dates: end: 20160927
  438. HUMIRA [Suspect]
     Active Substance: ADALIMUMAB
     Dosage: 1 DF, 1 DOSAGE FORM, BIW (2 DF, QW), SUBCUTANEOUS, FIRST ADMIN DATE: 2016-11-15
  439. HUMIRA [Suspect]
     Active Substance: ADALIMUMAB
     Dosage: 2 DOSAGE FORM, BIW (4DF,QW), SUBCUTANEOUS
     Dates: end: 20160927
  440. HUMIRA [Suspect]
     Active Substance: ADALIMUMAB
     Dosage: 40 MG, QW, SUBCUTANEOUS, FIRST ADMIN DATE: 2016-11-15
  441. HUMIRA [Suspect]
     Active Substance: ADALIMUMAB
     Dosage: UNK,UNK, QW, SUBCUTANEOUS, FIRST ADMIN DATE: 2016-11-15
  442. HUMIRA [Suspect]
     Active Substance: ADALIMUMAB
     Dosage: 40 MG, QW, SUBCUTANEOUS
  443. HUMIRA [Suspect]
     Active Substance: ADALIMUMAB
     Dosage: 40 MG, QW, SUBCUTANEOUS
     Dates: end: 20160927
  444. HUMIRA [Suspect]
     Active Substance: ADALIMUMAB
     Dosage: 2 DOSAGE FORM, BIW (4DF,QW), SUBDERMAL
     Dates: end: 20160927
  445. HUMIRA [Suspect]
     Active Substance: ADALIMUMAB
     Dosage: 40 MG, QW, SUBCUTANEOUS
     Dates: end: 20160927
  446. HUMIRA [Suspect]
     Active Substance: ADALIMUMAB
     Dosage: 1 DOSAGE FORM, BIW (2 DF, QW), SUBCUTANEOUS, FIRST ADMIN DATE: 2016-11-15
  447. HUMIRA [Suspect]
     Active Substance: ADALIMUMAB
     Dosage: 1 DOSAGE FORM, Q2W, SUBCUTANEOUS
  448. HUMIRA [Suspect]
     Active Substance: ADALIMUMAB
  449. HUMIRA [Suspect]
     Active Substance: ADALIMUMAB
     Dates: end: 20160927
  450. HUMIRA [Suspect]
     Active Substance: ADALIMUMAB
     Dates: end: 20160927
  451. HUMIRA [Suspect]
     Active Substance: ADALIMUMAB
     Dates: end: 20160927
  452. HUMIRA [Suspect]
     Active Substance: ADALIMUMAB
     Dosage: 40 MILLIGRAM, Q2W
     Dates: end: 20160927
  453. HUMIRA [Suspect]
     Active Substance: ADALIMUMAB
  454. EDOXABAN TOSYLATE [Suspect]
     Active Substance: EDOXABAN TOSYLATE
     Indication: Atrial fibrillation
     Dosage: 30 MG, QD DAILY, FIRST ADMIN DATE: 2016-09-30
  455. EDOXABAN TOSYLATE [Suspect]
     Active Substance: EDOXABAN TOSYLATE
     Dosage: 30 MG, QD
  456. EDOXABAN TOSYLATE [Suspect]
     Active Substance: EDOXABAN TOSYLATE
     Dosage: 30 MILLIGRAM, QD
  457. EDOXABAN TOSYLATE [Suspect]
     Active Substance: EDOXABAN TOSYLATE
     Dosage: 30 MG, QD, FIRST ADMIN DATE: 2016-09-30
  458. XIPAMIDE [Suspect]
     Active Substance: XIPAMIDE
     Indication: Product used for unknown indication
  459. XIPAMIDE [Suspect]
     Active Substance: XIPAMIDE
     Indication: Product used for unknown indication
  460. CHOLECALCIFEROL [Suspect]
     Active Substance: CHOLECALCIFEROL
     Indication: Product used for unknown indication
     Dosage: 20000 IU, QW (DAILY DOSE: 20000 IU INTERNATIONAL UNIT(S) EVERY WEEKS)?ROUTE: UNKNOWN
  461. CHOLECALCIFEROL [Suspect]
     Active Substance: CHOLECALCIFEROL
     Dosage: 20000 IU, QW?ROUTE: UNKNOWN
  462. TORSEMIDE [Suspect]
     Active Substance: TORSEMIDE
     Indication: Product used for unknown indication
     Dosage: 15 MG, QD, FIRST ADMIN DATE: 24 JAN 2017
  463. TORSEMIDE [Suspect]
     Active Substance: TORSEMIDE
     Dosage: 5 MG, QD
  464. TORSEMIDE [Suspect]
     Active Substance: TORSEMIDE
     Dosage: 15 MG, QD, FIRST ADMIN DATE: 24 JAN 2017
  465. TORSEMIDE [Suspect]
     Active Substance: TORSEMIDE
  466. TORSEMIDE [Suspect]
     Active Substance: TORSEMIDE
     Dosage: 5 MG, QD, FIRST ADMIN DATE: 24 JAN 2017
  467. TORSEMIDE [Suspect]
     Active Substance: TORSEMIDE
     Dosage: 5 MG, QD
  468. TORSEMIDE [Suspect]
     Active Substance: TORSEMIDE
     Dosage: 45 MG, QD, FIRST ADMIN DATE: 24 JAN 2017
  469. PREDNISOLONE [Concomitant]
     Active Substance: PREDNISOLONE
     Indication: Product used for unknown indication
  470. MOVICOL [Suspect]
     Active Substance: POLYETHYLENE GLYCOL 3350\POTASSIUM CHLORIDE\SODIUM BICARBONATE\SODIUM CHLORIDE
     Indication: Product used for unknown indication
  471. MOVICOL [Suspect]
     Active Substance: POLYETHYLENE GLYCOL 3350\POTASSIUM CHLORIDE\SODIUM BICARBONATE\SODIUM CHLORIDE
  472. MOVICOL [Suspect]
     Active Substance: POLYETHYLENE GLYCOL 3350\POTASSIUM CHLORIDE\SODIUM BICARBONATE\SODIUM CHLORIDE
  473. MOVICOL [Suspect]
     Active Substance: POLYETHYLENE GLYCOL 3350\POTASSIUM CHLORIDE\SODIUM BICARBONATE\SODIUM CHLORIDE
  474. MOVICOL [Suspect]
     Active Substance: POLYETHYLENE GLYCOL 3350\POTASSIUM CHLORIDE\SODIUM BICARBONATE\SODIUM CHLORIDE
  475. LACTULOSE [Suspect]
     Active Substance: LACTULOSE
     Indication: Product used for unknown indication
  476. LACTULOSE [Suspect]
     Active Substance: LACTULOSE
  477. LACTULOSE [Suspect]
     Active Substance: LACTULOSE
  478. LACTULOSE [Suspect]
     Active Substance: LACTULOSE
  479. LACTULOSE [Suspect]
     Active Substance: LACTULOSE
  480. PANTOPRAZOLE [Suspect]
     Active Substance: PANTOPRAZOLE
     Indication: Product used for unknown indication
  481. PANTOPRAZOLE [Suspect]
     Active Substance: PANTOPRAZOLE
     Dosage: 20 MG, QD?ROUTE: UNKNOWN
  482. TORSEMIDE [Concomitant]
     Active Substance: TORSEMIDE
     Indication: Product used for unknown indication
     Dosage: 1 DF, QD
     Route: 050
  483. TORSEMIDE [Concomitant]
     Active Substance: TORSEMIDE
     Dosage: 5 MG, QD
     Route: 050
  484. PREDNISOLONE [Suspect]
     Active Substance: PREDNISOLONE
     Indication: Product used for unknown indication
  485. PREDNISOLONE [Suspect]
     Active Substance: PREDNISOLONE
     Indication: Product used for unknown indication
  486. FOLIC ACID [Concomitant]
     Active Substance: FOLIC ACID
     Indication: Product used for unknown indication
  487. FOLIC ACID [Concomitant]
     Active Substance: FOLIC ACID
  488. FOLIC ACID [Concomitant]
     Active Substance: FOLIC ACID
  489. FOLIC ACID [Concomitant]
     Active Substance: FOLIC ACID
  490. DICLOFENAC [Suspect]
     Active Substance: DICLOFENAC
     Indication: Product used for unknown indication
     Dosage: 2 DOSAGE FORM, QD
  491. DICLOFENAC [Suspect]
     Active Substance: DICLOFENAC
     Dosage: UNK, QD
  492. DICLOFENAC [Suspect]
     Active Substance: DICLOFENAC
  493. DICLOFENAC [Suspect]
     Active Substance: DICLOFENAC
     Dosage: UNK, QD
  494. DICLOFENAC [Suspect]
     Active Substance: DICLOFENAC
     Dosage: UNK, QD
  495. DICLOFENAC SODIUM [Suspect]
     Active Substance: DICLOFENAC SODIUM
     Indication: Product used for unknown indication
     Dosage: 2 DOSAGE FORM, QD(2 DOSAGE FORM, QD STRAT AND STOP DATE 2026-10)?ROUTE: UNKNOWN
  496. DICLOFENAC SODIUM [Suspect]
     Active Substance: DICLOFENAC SODIUM
     Dosage: 2 DOSAGE FORM, QD(2 DOSAGE FORM, QD STRAT AND STOP DATE 2026-10)?ROUTE: UNKNOWN
  497. DICLOFENAC SODIUM [Suspect]
     Active Substance: DICLOFENAC SODIUM
     Dosage: 2 DOSAGE FORM, QD?ROUTE: UNKNOWN
  498. HYDROCHLOROTHIAZIDE\LOSARTAN POTASSIUM [Suspect]
     Active Substance: HYDROCHLOROTHIAZIDE\LOSARTAN POTASSIUM
     Indication: Product used for unknown indication
     Dosage: 1 DOSAGE FORM, QD
  499. HYDROCHLOROTHIAZIDE\LOSARTAN POTASSIUM [Suspect]
     Active Substance: HYDROCHLOROTHIAZIDE\LOSARTAN POTASSIUM
     Dosage: 1 DOSAGE FORM, QD
  500. HYDROCHLOROTHIAZIDE\LOSARTAN POTASSIUM [Suspect]
     Active Substance: HYDROCHLOROTHIAZIDE\LOSARTAN POTASSIUM
     Dosage: UNK, UNK, QD (100/25 MG)
  501. AMIODARONE HYDROCHLORIDE [Suspect]
     Active Substance: AMIODARONE HYDROCHLORIDE
     Indication: Product used for unknown indication
     Dosage: 200 MG
  502. AMIODARONE HYDROCHLORIDE [Suspect]
     Active Substance: AMIODARONE HYDROCHLORIDE
     Indication: Product used for unknown indication
  503. AMIODARONE HYDROCHLORIDE [Suspect]
     Active Substance: AMIODARONE HYDROCHLORIDE
  504. AMIODARONE HYDROCHLORIDE [Suspect]
     Active Substance: AMIODARONE HYDROCHLORIDE
  505. AMIODARONE HYDROCHLORIDE [Suspect]
     Active Substance: AMIODARONE HYDROCHLORIDE
  506. AMIODARONE HYDROCHLORIDE [Suspect]
     Active Substance: AMIODARONE HYDROCHLORIDE
  507. AMIODARONE HYDROCHLORIDE [Suspect]
     Active Substance: AMIODARONE HYDROCHLORIDE
  508. AMIODARONE HYDROCHLORIDE [Suspect]
     Active Substance: AMIODARONE HYDROCHLORIDE
  509. CANDESARTAN CILEXETIL\HYDROCHLOROTHIAZIDE [Suspect]
     Active Substance: CANDESARTAN CILEXETIL\HYDROCHLOROTHIAZIDE
     Indication: Product used for unknown indication
     Dosage: 1 DOSAGE FORM, QD
  510. CORDAREX [Concomitant]
     Active Substance: AMIODARONE
     Indication: Product used for unknown indication
  511. CORDAREX [Concomitant]
     Active Substance: AMIODARONE
  512. CORDAREX [Concomitant]
     Active Substance: AMIODARONE
  513. CORDAREX [Concomitant]
     Active Substance: AMIODARONE
  514. CORDAREX [Concomitant]
     Active Substance: AMIODARONE
  515. CORDAREX [Concomitant]
     Active Substance: AMIODARONE
  516. CORDAREX [Concomitant]
     Active Substance: AMIODARONE
  517. CORDAREX [Concomitant]
     Active Substance: AMIODARONE
  518. CORDAREX [Concomitant]
     Active Substance: AMIODARONE
  519. CORDAREX [Concomitant]
     Active Substance: AMIODARONE
  520. CORDAREX [Concomitant]
     Active Substance: AMIODARONE
  521. CORDAREX [Concomitant]
     Active Substance: AMIODARONE
  522. CORDAREX [Concomitant]
     Active Substance: AMIODARONE
  523. CORDAREX [Concomitant]
     Active Substance: AMIODARONE
  524. CORDAREX [Concomitant]
     Active Substance: AMIODARONE
  525. CORDAREX [Concomitant]
     Active Substance: AMIODARONE
  526. CORDAREX [Concomitant]
     Active Substance: AMIODARONE
  527. CORDAREX [Concomitant]
     Active Substance: AMIODARONE
  528. CORDAREX [Concomitant]
     Active Substance: AMIODARONE
  529. CORDAREX [Concomitant]
     Active Substance: AMIODARONE
  530. CORDAREX [Concomitant]
     Active Substance: AMIODARONE
  531. CORDAREX [Concomitant]
     Active Substance: AMIODARONE
  532. CORDAREX [Concomitant]
     Active Substance: AMIODARONE
  533. CORDAREX [Concomitant]
     Active Substance: AMIODARONE
  534. CORDAREX [Concomitant]
     Active Substance: AMIODARONE
  535. CORDAREX [Concomitant]
     Active Substance: AMIODARONE
  536. CORDAREX [Concomitant]
     Active Substance: AMIODARONE
  537. CORDAREX [Concomitant]
     Active Substance: AMIODARONE
  538. CORDAREX [Concomitant]
     Active Substance: AMIODARONE
  539. CORDAREX [Concomitant]
     Active Substance: AMIODARONE
  540. CORDAREX [Concomitant]
     Active Substance: AMIODARONE
  541. CORDAREX [Concomitant]
     Active Substance: AMIODARONE
  542. CORDAREX [Concomitant]
     Active Substance: AMIODARONE
  543. CORDAREX [Concomitant]
     Active Substance: AMIODARONE
  544. CORDAREX [Concomitant]
     Active Substance: AMIODARONE
  545. CORDAREX [Concomitant]
     Active Substance: AMIODARONE
  546. CORDAREX [Concomitant]
     Active Substance: AMIODARONE
  547. CORDAREX [Concomitant]
     Active Substance: AMIODARONE
  548. CORDAREX [Concomitant]
     Active Substance: AMIODARONE
  549. CORDAREX [Concomitant]
     Active Substance: AMIODARONE
  550. CORDAREX [Concomitant]
     Active Substance: AMIODARONE
  551. CORDAREX [Concomitant]
     Active Substance: AMIODARONE
  552. CORDAREX [Concomitant]
     Active Substance: AMIODARONE
  553. CORDAREX [Concomitant]
     Active Substance: AMIODARONE
  554. CORDAREX [Concomitant]
     Active Substance: AMIODARONE
  555. CORDAREX [Concomitant]
     Active Substance: AMIODARONE
  556. CORDAREX [Concomitant]
     Active Substance: AMIODARONE
  557. CORDAREX [Concomitant]
     Active Substance: AMIODARONE
  558. CORDAREX [Concomitant]
     Active Substance: AMIODARONE
  559. CORDAREX [Concomitant]
     Active Substance: AMIODARONE
  560. CORDAREX [Concomitant]
     Active Substance: AMIODARONE
  561. CORDAREX [Concomitant]
     Active Substance: AMIODARONE
  562. CORDAREX [Concomitant]
     Active Substance: AMIODARONE
  563. CORDAREX [Concomitant]
     Active Substance: AMIODARONE
  564. CORDAREX [Concomitant]
     Active Substance: AMIODARONE
  565. CORDAREX [Concomitant]
     Active Substance: AMIODARONE
     Dosage: 200 MG, QD?ROUTE: UNKNOWN
  566. CORDAREX [Concomitant]
     Active Substance: AMIODARONE
  567. CORDAREX [Concomitant]
     Active Substance: AMIODARONE
  568. CORDAREX [Concomitant]
     Active Substance: AMIODARONE
  569. CORDAREX [Concomitant]
     Active Substance: AMIODARONE
  570. CORDAREX [Concomitant]
     Active Substance: AMIODARONE
  571. CORDAREX [Concomitant]
     Active Substance: AMIODARONE
  572. CORDAREX [Concomitant]
     Active Substance: AMIODARONE
  573. CORDAREX [Concomitant]
     Active Substance: AMIODARONE
  574. CORDAREX [Concomitant]
     Active Substance: AMIODARONE
  575. CORDAREX [Concomitant]
     Active Substance: AMIODARONE
  576. CORDAREX [Concomitant]
     Active Substance: AMIODARONE
  577. CORDAREX [Concomitant]
     Active Substance: AMIODARONE
  578. CORDAREX [Concomitant]
     Active Substance: AMIODARONE
  579. CORDAREX [Concomitant]
     Active Substance: AMIODARONE
  580. CORDAREX [Concomitant]
     Active Substance: AMIODARONE
  581. CORDAREX [Concomitant]
     Active Substance: AMIODARONE
  582. CORDAREX [Concomitant]
     Active Substance: AMIODARONE
  583. CORDAREX [Concomitant]
     Active Substance: AMIODARONE
  584. CORDAREX [Concomitant]
     Active Substance: AMIODARONE
  585. CORDAREX [Concomitant]
     Active Substance: AMIODARONE
  586. CORDAREX [Concomitant]
     Active Substance: AMIODARONE
  587. CORDAREX [Concomitant]
     Active Substance: AMIODARONE
  588. CORDAREX [Concomitant]
     Active Substance: AMIODARONE
  589. CORDAREX [Concomitant]
     Active Substance: AMIODARONE
  590. CORDAREX [Concomitant]
     Active Substance: AMIODARONE
  591. CORDAREX [Concomitant]
     Active Substance: AMIODARONE
  592. CORDAREX [Concomitant]
     Active Substance: AMIODARONE
  593. CORDAREX [Concomitant]
     Active Substance: AMIODARONE
  594. CORDAREX [Concomitant]
     Active Substance: AMIODARONE
  595. CORDAREX [Concomitant]
     Active Substance: AMIODARONE
  596. CORDAREX [Concomitant]
     Active Substance: AMIODARONE
  597. CORDAREX [Concomitant]
     Active Substance: AMIODARONE
  598. CORDAREX [Concomitant]
     Active Substance: AMIODARONE
  599. CORDAREX [Concomitant]
     Active Substance: AMIODARONE
  600. CORDAREX [Concomitant]
     Active Substance: AMIODARONE
  601. CORDAREX [Concomitant]
     Active Substance: AMIODARONE
  602. CORDAREX [Concomitant]
     Active Substance: AMIODARONE
  603. CORDAREX [Concomitant]
     Active Substance: AMIODARONE
  604. CORDAREX [Concomitant]
     Active Substance: AMIODARONE
  605. CORDAREX [Concomitant]
     Active Substance: AMIODARONE
  606. CORDAREX [Concomitant]
     Active Substance: AMIODARONE
  607. CORDAREX [Concomitant]
     Active Substance: AMIODARONE
  608. CORDAREX [Concomitant]
     Active Substance: AMIODARONE
  609. CORDAREX [Concomitant]
     Active Substance: AMIODARONE
  610. CORDAREX [Concomitant]
     Active Substance: AMIODARONE
  611. CORDAREX [Concomitant]
     Active Substance: AMIODARONE
  612. CORDAREX [Concomitant]
     Active Substance: AMIODARONE
  613. CORDAREX [Concomitant]
     Active Substance: AMIODARONE
  614. CORDAREX [Concomitant]
     Active Substance: AMIODARONE
  615. CORDAREX [Concomitant]
     Active Substance: AMIODARONE
  616. CORDAREX [Concomitant]
     Active Substance: AMIODARONE
  617. CORDAREX [Concomitant]
     Active Substance: AMIODARONE
  618. CORDAREX [Concomitant]
     Active Substance: AMIODARONE
  619. CORDAREX [Concomitant]
     Active Substance: AMIODARONE
  620. CORDAREX [Concomitant]
     Active Substance: AMIODARONE
     Dosage: 200 MG?ROUTE: UNKNOWN
  621. CORDAREX [Concomitant]
     Active Substance: AMIODARONE
  622. CORDAREX [Concomitant]
     Active Substance: AMIODARONE
  623. CORDAREX [Concomitant]
     Active Substance: AMIODARONE
  624. CORDAREX [Concomitant]
     Active Substance: AMIODARONE
  625. CORDAREX [Concomitant]
     Active Substance: AMIODARONE
  626. CORDAREX [Concomitant]
     Active Substance: AMIODARONE
  627. CORDAREX [Concomitant]
     Active Substance: AMIODARONE
  628. CORDAREX [Concomitant]
     Active Substance: AMIODARONE
  629. CORDAREX [Concomitant]
     Active Substance: AMIODARONE
     Dosage: 200 MG?ROUTE: UNKNOWN
  630. CORDAREX [Concomitant]
     Active Substance: AMIODARONE
  631. CORDAREX [Concomitant]
     Active Substance: AMIODARONE
  632. CORDAREX [Concomitant]
     Active Substance: AMIODARONE
  633. CORDAREX [Concomitant]
     Active Substance: AMIODARONE
  634. CORDAREX [Concomitant]
     Active Substance: AMIODARONE
  635. CORDAREX [Concomitant]
     Active Substance: AMIODARONE
  636. CORDAREX [Concomitant]
     Active Substance: AMIODARONE
  637. CORDAREX [Concomitant]
     Active Substance: AMIODARONE
  638. CORDAREX [Concomitant]
     Active Substance: AMIODARONE
  639. CORDAREX [Concomitant]
     Active Substance: AMIODARONE
  640. CORDAREX [Concomitant]
     Active Substance: AMIODARONE
  641. CORDAREX [Concomitant]
     Active Substance: AMIODARONE
  642. CORDAREX [Concomitant]
     Active Substance: AMIODARONE
  643. CORDAREX [Concomitant]
     Active Substance: AMIODARONE
  644. CORDAREX [Concomitant]
     Active Substance: AMIODARONE
  645. CORDAREX [Concomitant]
     Active Substance: AMIODARONE
  646. CORDAREX [Concomitant]
     Active Substance: AMIODARONE
  647. CORDAREX [Concomitant]
     Active Substance: AMIODARONE
  648. CORDAREX [Concomitant]
     Active Substance: AMIODARONE
  649. CORDAREX [Concomitant]
     Active Substance: AMIODARONE
  650. CORDAREX [Concomitant]
     Active Substance: AMIODARONE
  651. CORDAREX [Concomitant]
     Active Substance: AMIODARONE
     Dosage: 200 MG, QD?ROUTE: UNKNOWN
  652. CORDAREX [Concomitant]
     Active Substance: AMIODARONE
  653. CORDAREX [Concomitant]
     Active Substance: AMIODARONE
  654. CORDAREX [Concomitant]
     Active Substance: AMIODARONE
  655. CORDAREX [Concomitant]
     Active Substance: AMIODARONE
  656. CORDAREX [Concomitant]
     Active Substance: AMIODARONE
  657. CORDAREX [Concomitant]
     Active Substance: AMIODARONE
  658. CORDAREX [Concomitant]
     Active Substance: AMIODARONE
  659. CORDAREX [Concomitant]
     Active Substance: AMIODARONE
  660. CORDAREX [Concomitant]
     Active Substance: AMIODARONE
  661. CORDAREX [Concomitant]
     Active Substance: AMIODARONE
     Dosage: 200 MG?ROUTE: UNKNOWN
  662. CORDAREX [Concomitant]
     Active Substance: AMIODARONE
  663. CORDAREX [Concomitant]
     Active Substance: AMIODARONE
  664. CORDAREX [Concomitant]
     Active Substance: AMIODARONE
  665. CORDAREX [Concomitant]
     Active Substance: AMIODARONE
  666. CORDAREX [Concomitant]
     Active Substance: AMIODARONE
  667. CORDAREX [Concomitant]
     Active Substance: AMIODARONE
  668. CORDAREX [Concomitant]
     Active Substance: AMIODARONE
  669. CORDAREX [Concomitant]
     Active Substance: AMIODARONE
  670. CORDAREX [Concomitant]
     Active Substance: AMIODARONE
  671. CORDAREX [Concomitant]
     Active Substance: AMIODARONE
  672. CORDAREX [Concomitant]
     Active Substance: AMIODARONE
  673. CORDAREX [Concomitant]
     Active Substance: AMIODARONE
  674. CORDAREX [Concomitant]
     Active Substance: AMIODARONE
  675. CORDAREX [Concomitant]
     Active Substance: AMIODARONE
  676. CORDAREX [Concomitant]
     Active Substance: AMIODARONE
  677. CORDAREX [Concomitant]
     Active Substance: AMIODARONE
  678. CORDAREX [Concomitant]
     Active Substance: AMIODARONE
  679. CORDAREX [Concomitant]
     Active Substance: AMIODARONE
  680. CORDAREX [Concomitant]
     Active Substance: AMIODARONE
  681. CORDAREX [Concomitant]
     Active Substance: AMIODARONE
  682. CORDAREX [Concomitant]
     Active Substance: AMIODARONE
  683. CORDAREX [Concomitant]
     Active Substance: AMIODARONE
  684. CORDAREX [Concomitant]
     Active Substance: AMIODARONE
  685. CORDAREX [Concomitant]
     Active Substance: AMIODARONE
  686. CORDAREX [Concomitant]
     Active Substance: AMIODARONE
  687. CORDAREX [Concomitant]
     Active Substance: AMIODARONE
     Dosage: 200 MG, QD?ROUTE: UNKNOWN
  688. CORDAREX [Concomitant]
     Active Substance: AMIODARONE
  689. CORDAREX [Concomitant]
     Active Substance: AMIODARONE
  690. CORDAREX [Concomitant]
     Active Substance: AMIODARONE
  691. CORDAREX [Concomitant]
     Active Substance: AMIODARONE
  692. CORDAREX [Concomitant]
     Active Substance: AMIODARONE
     Dosage: 200 MG?ROUTE: UNKNOWN
  693. CORDAREX [Concomitant]
     Active Substance: AMIODARONE
  694. CORDAREX [Concomitant]
     Active Substance: AMIODARONE
  695. CORDAREX [Concomitant]
     Active Substance: AMIODARONE
  696. CORDAREX [Concomitant]
     Active Substance: AMIODARONE
  697. CORDAREX [Concomitant]
     Active Substance: AMIODARONE
  698. CORDAREX [Concomitant]
     Active Substance: AMIODARONE
  699. CORDAREX [Concomitant]
     Active Substance: AMIODARONE
  700. CORDAREX [Concomitant]
     Active Substance: AMIODARONE
     Dosage: 200 MG, QD?ROUTE: UNKNOWN
  701. CORDAREX [Concomitant]
     Active Substance: AMIODARONE
  702. CORDAREX [Concomitant]
     Active Substance: AMIODARONE
  703. CORDAREX [Concomitant]
     Active Substance: AMIODARONE
  704. CORDAREX [Concomitant]
     Active Substance: AMIODARONE
  705. CORDAREX [Concomitant]
     Active Substance: AMIODARONE
  706. CORDAREX [Concomitant]
     Active Substance: AMIODARONE
  707. CORDAREX [Concomitant]
     Active Substance: AMIODARONE
  708. CORDAREX [Concomitant]
     Active Substance: AMIODARONE
     Dosage: 200 MG, QD?ROUTE: UNKNOWN
  709. CORDAREX [Concomitant]
     Active Substance: AMIODARONE
  710. CORDAREX [Concomitant]
     Active Substance: AMIODARONE
  711. CORDAREX [Concomitant]
     Active Substance: AMIODARONE
  712. CORDAREX [Concomitant]
     Active Substance: AMIODARONE
  713. CORDAREX [Concomitant]
     Active Substance: AMIODARONE
  714. CORDAREX [Concomitant]
     Active Substance: AMIODARONE
  715. CORDAREX [Concomitant]
     Active Substance: AMIODARONE
  716. CORDAREX [Concomitant]
     Active Substance: AMIODARONE
     Dosage: 200 MG, QD?ROUTE: UNKNOWN
  717. CORDAREX [Concomitant]
     Active Substance: AMIODARONE
  718. CORDAREX [Concomitant]
     Active Substance: AMIODARONE
  719. CORDAREX [Concomitant]
     Active Substance: AMIODARONE
  720. CORDAREX [Concomitant]
     Active Substance: AMIODARONE
     Dosage: 200 MG?ROUTE: UNKNOWN
  721. CORDAREX [Concomitant]
     Active Substance: AMIODARONE
  722. CORDAREX [Concomitant]
     Active Substance: AMIODARONE
  723. CORDAREX [Concomitant]
     Active Substance: AMIODARONE
  724. CORDAREX [Concomitant]
     Active Substance: AMIODARONE
  725. CORDAREX [Concomitant]
     Active Substance: AMIODARONE
  726. CORDAREX [Concomitant]
     Active Substance: AMIODARONE
  727. CORDAREX [Concomitant]
     Active Substance: AMIODARONE
  728. CORDAREX [Concomitant]
     Active Substance: AMIODARONE
  729. CORDAREX [Concomitant]
     Active Substance: AMIODARONE
  730. CORDAREX [Concomitant]
     Active Substance: AMIODARONE
  731. CORDAREX [Concomitant]
     Active Substance: AMIODARONE
  732. CORDAREX [Concomitant]
     Active Substance: AMIODARONE
  733. CORDAREX [Concomitant]
     Active Substance: AMIODARONE
  734. CORDAREX [Concomitant]
     Active Substance: AMIODARONE
  735. CORDAREX [Concomitant]
     Active Substance: AMIODARONE
  736. CORDAREX [Concomitant]
     Active Substance: AMIODARONE
  737. CORDAREX [Concomitant]
     Active Substance: AMIODARONE
  738. CORDAREX [Concomitant]
     Active Substance: AMIODARONE
  739. CORDAREX [Concomitant]
     Active Substance: AMIODARONE
  740. CORDAREX [Concomitant]
     Active Substance: AMIODARONE
  741. CORDAREX [Concomitant]
     Active Substance: AMIODARONE
  742. CORDAREX [Concomitant]
     Active Substance: AMIODARONE
  743. CORDAREX [Concomitant]
     Active Substance: AMIODARONE
  744. LOSARTAN [Suspect]
     Active Substance: LOSARTAN
     Indication: Product used for unknown indication
     Dosage: 1 DOSAGE FORM, QD
  745. LOSARTAN [Suspect]
     Active Substance: LOSARTAN

REACTIONS (22)
  - Wound infection pseudomonas [Recovering/Resolving]
  - Dyspepsia [Unknown]
  - Gastrointestinal haemorrhage [Recovered/Resolved]
  - Eructation [Unknown]
  - Gait disturbance [Recovering/Resolving]
  - Arterial haemorrhage [Recovered/Resolved]
  - Haematuria [Recovering/Resolving]
  - Femoral hernia incarcerated [Recovered/Resolved]
  - Anaemia [Recovered/Resolved]
  - Lymphatic fistula [Recovered/Resolved]
  - Faecaloma [Unknown]
  - Abdominal discomfort [Unknown]
  - General physical health deterioration [Unknown]
  - Hepatic cyst [Unknown]
  - Mitral valve incompetence [Unknown]
  - Coronary artery disease [Unknown]
  - Decreased appetite [Unknown]
  - Cardiovascular disorder [Unknown]
  - Acute kidney injury [Unknown]
  - Postoperative wound infection [Recovered/Resolved]
  - Groin pain [Unknown]
  - Dyspnoea [Unknown]

NARRATIVE: CASE EVENT DATE: 20160928
